FAERS Safety Report 6815622-8 (Version None)
Quarter: 2010Q3

REPORT INFORMATION
  Report Type: 
  Country: None (occurrence: None)
  Receive Date: 20100702
  Receipt Date: 20100622
  Transmission Date: 20110219
  Serious: Yes (Hospitalization, Other)
  Sender: FDA-Public Use
  Company Number: GB-ELI_LILLY_AND_COMPANY-GB201005005587

PATIENT
  Age: 47 Year
  Sex: Male

DRUGS (8)
  1. ALIMTA [Suspect]
     Indication: NON-SMALL CELL LUNG CANCER
     Dosage: 700 MG, UNK
     Route: 042
     Dates: start: 20100507, end: 20100507
  2. CARBOPLATIN [Concomitant]
     Indication: CHEMOTHERAPY
     Dosage: 585 MG, OTHER (EVERY THREE WEEKS)
     Route: 042
     Dates: start: 20100507
  3. CLEXANE [Concomitant]
     Indication: DEEP VEIN THROMBOSIS
     Dosage: 120 MG, DAILY (1/D)
     Route: 065
     Dates: start: 20100507
  4. DEXAMETHASONE [Concomitant]
     Indication: PROPHYLAXIS
     Dosage: UNK, UNKNOWN
     Route: 065
  5. FOLIC ACID [Concomitant]
     Indication: PROPHYLAXIS
     Dosage: 400 UG, UNKNOWN
     Route: 048
     Dates: start: 20100501
  6. METOCLOPRAMIDE [Concomitant]
     Indication: PROPHYLAXIS
     Dosage: UNK, UNKNOWN
     Route: 065
  7. ONDANSETRON [Concomitant]
     Indication: PROPHYLAXIS
     Dosage: UNK, UNKNOWN
     Route: 065
  8. VITAMIN B-12 [Concomitant]
     Indication: PROPHYLAXIS
     Dosage: 1 MG, EVERY 9 WEEKS
     Route: 030
     Dates: start: 20100201

REACTIONS (6)
  - ASTHENIA [None]
  - BACK PAIN [None]
  - BLOOD PRESSURE DECREASED [None]
  - BODY TEMPERATURE INCREASED [None]
  - HEPATITIS ACUTE [None]
  - PAIN [None]
